FAERS Safety Report 19091720 (Version 1)
Quarter: 2021Q2

REPORT INFORMATION
  Report Type: Spontaneous
  Country: CN (occurrence: CN)
  Receive Date: 20210405
  Receipt Date: 20210405
  Transmission Date: 20210717
  Serious: Yes (Hospitalization)
  Sender: FDA-Public Use
  Company Number: CN-PFIZER INC-2021351214

PATIENT
  Age: 25 Year
  Sex: Male

DRUGS (5)
  1. SODIUM CHLORIDE 0.9% [Concomitant]
     Active Substance: SODIUM CHLORIDE
     Indication: CHEMOTHERAPY
     Dosage: 100 ML
     Dates: start: 20210304, end: 20210305
  2. SODIUM CHLORIDE 0.9% [Concomitant]
     Active Substance: SODIUM CHLORIDE
     Dosage: 500 ML
     Dates: start: 20210305
  3. CYTOSAR [Suspect]
     Active Substance: CYTARABINE
     Indication: CHEMOTHERAPY
     Dosage: 2.000 G, 1X/DAY
     Route: 041
     Dates: start: 20210305, end: 20210306
  4. METHOTREXATE. [Suspect]
     Active Substance: METHOTREXATE
     Indication: CHEMOTHERAPY
     Dosage: 1.900 G, 1X/DAY
     Route: 041
     Dates: start: 20210304, end: 20210305
  5. SODIUM CHLORIDE 0.9% [Concomitant]
     Active Substance: SODIUM CHLORIDE
     Dosage: 500 ML
     Dates: start: 20210304, end: 20210305

REACTIONS (4)
  - Granulocyte count decreased [Recovering/Resolving]
  - Pyrexia [Recovering/Resolving]
  - Myelosuppression [Recovering/Resolving]
  - Infection [Recovering/Resolving]

NARRATIVE: CASE EVENT DATE: 20210316
